FAERS Safety Report 6840337-X (Version None)
Quarter: 2010Q3

REPORT INFORMATION
  Report Type: 
  Country: None (occurrence: None)
  Receive Date: 20100714
  Receipt Date: 20100702
  Transmission Date: 20110219
  Serious: Yes (Death, Hospitalization, Disabling, Other)
  Sender: FDA-Public Use
  Company Number: US-PERRIGO-10US010980

PATIENT
  Sex: Female

DRUGS (3)
  1. SODIUM PHOSPHATE GINGER-LEMON SALINE LAXATIVE 660 MG/ML 556 [Suspect]
     Indication: BOWEL PREPARATION
     Dosage: UNK
     Route: 048
     Dates: start: 20031201, end: 20031201
  2. VISICOL [Suspect]
     Indication: BOWEL PREPARATION
     Dosage: UNK
     Route: 048
     Dates: start: 20031201, end: 20031201
  3. ANTIHYPERTENSIVES [Concomitant]
     Indication: HYPERTENSION
     Dosage: UNK
     Route: 048

REACTIONS (5)
  - ANXIETY [None]
  - EMOTIONAL DISTRESS [None]
  - NEPHROPATHY TOXIC [None]
  - PAIN [None]
  - RENAL FAILURE [None]
